FAERS Safety Report 23846451 (Version 1)
Quarter: 2024Q2

REPORT INFORMATION
  Report Type: Spontaneous
  Country: US (occurrence: US)
  Receive Date: 20240513
  Receipt Date: 20240513
  Transmission Date: 20240716
  Serious: Yes (Other)
  Sender: FDA-Public Use
  Company Number: US-TEVA-VS-3196345

PATIENT
  Age: 66 Year
  Sex: Female
  Weight: 97.52 kg

DRUGS (2)
  1. AJOVY [Suspect]
     Active Substance: FREMANEZUMAB-VFRM
     Indication: Migraine
     Route: 065
  2. AJOVY [Suspect]
     Active Substance: FREMANEZUMAB-VFRM

REACTIONS (11)
  - Diabetes mellitus [Unknown]
  - Dizziness [Unknown]
  - Red blood cell sedimentation rate increased [Unknown]
  - Eye contusion [Unknown]
  - Loss of consciousness [Unknown]
  - Retinal disorder [Unknown]
  - Photopsia [Unknown]
  - Limb injury [Unknown]
  - Head injury [Unknown]
  - Visual impairment [Unknown]
  - Fall [Unknown]

NARRATIVE: CASE EVENT DATE: 20240101
